FAERS Safety Report 4651118-X (Version None)
Quarter: 2005Q2

REPORT INFORMATION
  Report Type: 
  Country: None (occurrence: None)
  Receive Date: 20050503
  Receipt Date: 20050421
  Transmission Date: 20051028
  Serious: Yes (Death)
  Sender: FDA-Public Use
  Company Number: CA-JNJFOC-20050405357

PATIENT
  Age: 57 Year
  Sex: Female

DRUGS (7)
  1. DURAGESIC-100 [Suspect]
     Route: 062
  2. ALLOPURINOL [Concomitant]
     Indication: GOUT
     Route: 049
  3. AMIODARONE [Concomitant]
     Route: 049
  4. GLYBURIDE [Concomitant]
     Route: 049
  5. WARFARIN [Concomitant]
     Indication: ATRIAL FIBRILLATION
     Route: 049
  6. FUROSEMIDE [Concomitant]
     Indication: DIURETIC THERAPY
     Route: 049
  7. BEXTRA [Concomitant]
     Route: 049

REACTIONS (4)
  - CARDIAC DISORDER [None]
  - DEATH [None]
  - MEDICATION ERROR [None]
  - RESPIRATORY DEPRESSION [None]
